FAERS Safety Report 13479220 (Version 1)
Quarter: 2017Q2

REPORT INFORMATION
  Report Type: Spontaneous
  Country: US (occurrence: US)
  Receive Date: 20170425
  Receipt Date: 20170425
  Transmission Date: 20170830
  Serious: Yes (Other)
  Sender: FDA-Public Use
  Company Number: None

PATIENT
  Age: 72 Year
  Sex: Female
  Weight: 92.99 kg

DRUGS (6)
  1. ALCAINE [Suspect]
     Active Substance: PROPARACAINE HYDROCHLORIDE
  2. CALCIUM [Concomitant]
     Active Substance: CALCIUM
  3. ZINC. [Concomitant]
     Active Substance: ZINC
  4. MAGNESIUM [Concomitant]
     Active Substance: MAGNESIUM
  5. OMEPRAZOLE. [Concomitant]
     Active Substance: OMEPRAZOLE
  6. ETODOLAC. [Concomitant]
     Active Substance: ETODOLAC

REACTIONS (6)
  - Visual impairment [None]
  - Eye pain [None]
  - Vision blurred [None]
  - Ocular hyperaemia [None]
  - Superficial injury of eye [None]
  - Cataract [None]

NARRATIVE: CASE EVENT DATE: 20151202
